FAERS Safety Report 19355573 (Version 2)
Quarter: 2021Q2

REPORT INFORMATION
  Report Type: Spontaneous
  Country: US (occurrence: US)
  Receive Date: 20210602
  Receipt Date: 20210616
  Transmission Date: 20210717
  Serious: No
  Sender: FDA-Public Use
  Company Number: US-TEVA-2021-US-1914106

PATIENT

DRUGS (1)
  1. LEVALBUTEROL. [Suspect]
     Active Substance: LEVALBUTEROL
     Dosage: POTENCY :1.25 MG IN 5 ML
     Route: 065

REACTIONS (2)
  - Throat irritation [Unknown]
  - Product quality issue [Unknown]
